FAERS Safety Report 25435112 (Version 5)
Quarter: 2025Q4

REPORT INFORMATION
  Report Type: Report from Study
  Country: BR (occurrence: BR)
  Receive Date: 20250613
  Receipt Date: 20251208
  Transmission Date: 20260118
  Serious: Yes (Other)
  Sender: NOVARTIS
  Company Number: BR-002147023-NVSC2024BR080539

PATIENT
  Sex: Female
  Weight: 110 kg

DRUGS (13)
  1. KISQALI [Suspect]
     Active Substance: RIBOCICLIB SUCCINATE
     Indication: Breast cancer metastatic
     Dosage: UNK
     Route: 065
     Dates: start: 202401
  2. KISQALI [Suspect]
     Active Substance: RIBOCICLIB SUCCINATE
     Dosage: UNK
     Route: 065
  3. KISQALI [Suspect]
     Active Substance: RIBOCICLIB SUCCINATE
     Dosage: UNK
     Route: 065
  4. KISQALI [Suspect]
     Active Substance: RIBOCICLIB SUCCINATE
     Dosage: UNK
     Route: 065
  5. KISQALI [Suspect]
     Active Substance: RIBOCICLIB SUCCINATE
     Dosage: UNK
     Route: 065
  6. KISQALI [Suspect]
     Active Substance: RIBOCICLIB SUCCINATE
     Dosage: 3 DOSAGE FORM, UNKNOWN
     Route: 065
  7. KISQALI [Suspect]
     Active Substance: RIBOCICLIB SUCCINATE
     Dosage: UNK
     Route: 065
  8. KISQALI [Suspect]
     Active Substance: RIBOCICLIB SUCCINATE
     Dosage: UNK
     Route: 065
  9. KISQALI [Suspect]
     Active Substance: RIBOCICLIB SUCCINATE
     Dosage: UNK
     Route: 065
  10. KISQALI [Suspect]
     Active Substance: RIBOCICLIB SUCCINATE
     Dosage: UNK
     Route: 048
  11. KISQALI [Suspect]
     Active Substance: RIBOCICLIB SUCCINATE
     Dosage: 3 DOSAGE FORM, QD
     Route: 048
  12. ANASTROZOLE [Concomitant]
     Active Substance: ANASTROZOLE
     Indication: Product used for unknown indication
     Dosage: UNK,
     Route: 065
  13. ANASTROZOLE [Concomitant]
     Active Substance: ANASTROZOLE
     Indication: Hormone therapy
     Dosage: 1 DOSAGE FORM, QD (TABLET)
     Route: 048
     Dates: start: 202401

REACTIONS (83)
  - Oesophageal injury [Recovered/Resolved]
  - Metastases to spine [Recovering/Resolving]
  - Spinal fracture [Recovering/Resolving]
  - Compression fracture [Unknown]
  - Dengue fever [Recovered/Resolved]
  - Malaise [Recovered/Resolved]
  - Feeling abnormal [Recovered/Resolved]
  - Feeling abnormal [Not Recovered/Not Resolved]
  - Decreased immune responsiveness [Recovered/Resolved]
  - Memory impairment [Recovering/Resolving]
  - Fatigue [Recovering/Resolving]
  - Asthenia [Recovered/Resolved]
  - Pruritus [Recovered/Resolved]
  - Taste disorder [Recovered/Resolved]
  - Decreased appetite [Recovered/Resolved]
  - Petechiae [Recovered/Resolved]
  - Pyrexia [Recovered/Resolved]
  - White blood cell count decreased [Recovered/Resolved]
  - Pain [Recovered/Resolved]
  - Peripheral swelling [Not Recovered/Not Resolved]
  - Liver disorder [Recovered/Resolved]
  - Rash papular [Not Recovered/Not Resolved]
  - Skin texture abnormal [Not Recovered/Not Resolved]
  - Erythema [Not Recovered/Not Resolved]
  - Fall [Unknown]
  - Pain [Recovering/Resolving]
  - Bone pain [Recovering/Resolving]
  - Arthralgia [Recovering/Resolving]
  - Movement disorder [Recovering/Resolving]
  - Nasopharyngitis [Recovering/Resolving]
  - Cough [Recovering/Resolving]
  - Dysphonia [Recovering/Resolving]
  - Productive cough [Recovering/Resolving]
  - Rhinorrhoea [Recovering/Resolving]
  - Headache [Not Recovered/Not Resolved]
  - Sinusitis [Recovering/Resolving]
  - Dry skin [Not Recovered/Not Resolved]
  - Skin discolouration [Recovering/Resolving]
  - Disturbance in attention [Not Recovered/Not Resolved]
  - Pruritus [Not Recovered/Not Resolved]
  - Sensitive skin [Recovered/Resolved]
  - Animal bite [Unknown]
  - Bradyphrenia [Recovering/Resolving]
  - Malaise [Recovered/Resolved]
  - Chest pain [Recovered/Resolved]
  - Breast pain [Recovered/Resolved]
  - Flatulence [Unknown]
  - Skin depigmentation [Not Recovered/Not Resolved]
  - Skin atrophy [Unknown]
  - Dyspepsia [Not Recovered/Not Resolved]
  - Oesophagitis [Recovered/Resolved]
  - Contusion [Not Recovered/Not Resolved]
  - Pinta [Unknown]
  - Skin hyperpigmentation [Recovered/Resolved]
  - Rosacea [Unknown]
  - Hair colour changes [Unknown]
  - Intervertebral disc protrusion [Not Recovered/Not Resolved]
  - Swelling [Recovering/Resolving]
  - Retching [Recovering/Resolving]
  - Fear of death [Unknown]
  - Back pain [Recovered/Resolved]
  - Concomitant disease aggravated [Recovered/Resolved]
  - Sciatica [Recovering/Resolving]
  - Hernia pain [Recovering/Resolving]
  - Dysstasia [Recovering/Resolving]
  - Dysphagia [Unknown]
  - Hepatic steatosis [Not Recovered/Not Resolved]
  - Condition aggravated [Unknown]
  - Product use issue [Unknown]
  - Inappropriate schedule of product administration [Unknown]
  - Weight increased [Unknown]
  - Back pain [Recovering/Resolving]
  - Oesophageal pain [Unknown]
  - White blood cell count decreased [Not Recovered/Not Resolved]
  - Breast neoplasm [Unknown]
  - Skin hyperpigmentation [Not Recovered/Not Resolved]
  - Paradoxical osteoblastic flare [Unknown]
  - Cholelithiasis [Unknown]
  - Therapeutic product effect decreased [Unknown]
  - Breast mass [Unknown]
  - Skeletal injury [Unknown]
  - Mass [Unknown]
  - Feeling hot [Unknown]

NARRATIVE: CASE EVENT DATE: 20240101
